FAERS Safety Report 5125670-4 (Version None)
Quarter: 2006Q4

REPORT INFORMATION
  Report Type: 
  Country: None (occurrence: None)
  Receive Date: 20061012
  Receipt Date: 20040109
  Transmission Date: 20070319
  Serious: Yes (Hospitalization)
  Sender: FDA-Public Use
  Company Number: IL-SANOFI-SYNTHELABO-F01200400045

PATIENT
  Sex: Male

DRUGS (5)
  1. ASPIRIN [Concomitant]
     Dosage: UNK
     Route: 065
     Dates: start: 19980615
  2. NORMITEN [Concomitant]
     Dosage: UNK
     Route: 065
     Dates: start: 19980615
  3. CAPECITABINE [Suspect]
     Dosage: 1800 MG/M2 TWICE A DAY FOR TWO WEEKS, Q3W
     Route: 048
     Dates: start: 20031116, end: 20031130
  4. OXALIPLATIN [Suspect]
     Indication: COLON CANCER
     Route: 042
     Dates: start: 20031116, end: 20031116
  5. VASCASE [Concomitant]
     Dosage: UNK
     Route: 065
     Dates: start: 19980615

REACTIONS (2)
  - CEREBRAL INFARCTION [None]
  - DYSPNOEA [None]
